FAERS Safety Report 12695972 (Version 1)
Quarter: 2016Q3

REPORT INFORMATION
  Report Type: Spontaneous
  Country: US (occurrence: US)
  Receive Date: 20160829
  Receipt Date: 20160829
  Transmission Date: 20161109
  Serious: Yes (Hospitalization, Other)
  Sender: FDA-Public Use
  Company Number: US-ZYDUS-011964

PATIENT
  Age: 63 Year
  Sex: Male

DRUGS (2)
  1. MORPHINE/MORPHINE HYDROCHLORIDE/MORPHINE SULFATE/MORPHINE TARTRATE [Suspect]
     Active Substance: MORPHINE\MORPHINE HYDROCHLORIDE\MORPHINE SULFATE\MORPHINE TARTRATE
     Indication: PRODUCT USED FOR UNKNOWN INDICATION
     Route: 065
  2. ETHANOL [Concomitant]
     Active Substance: ALCOHOL
     Indication: PRODUCT USED FOR UNKNOWN INDICATION
     Route: 065

REACTIONS (27)
  - Loss of consciousness [Unknown]
  - Hypopnoea [Unknown]
  - Pneumonia aspiration [Unknown]
  - Hyperreflexia [Unknown]
  - Anal incontinence [Unknown]
  - Neuropsychiatric syndrome [Unknown]
  - Disinhibition [Unknown]
  - Bradyphrenia [Unknown]
  - Impulse-control disorder [Unknown]
  - Mental status changes [Recovering/Resolving]
  - Acute kidney injury [Unknown]
  - Memory impairment [Recovering/Resolving]
  - Leukoencephalopathy [Recovering/Resolving]
  - Disorientation [Recovering/Resolving]
  - Condition aggravated [Unknown]
  - Disturbance in attention [Recovering/Resolving]
  - Parkinsonism [Unknown]
  - Apathy [Unknown]
  - Confabulation [Unknown]
  - Gait disturbance [Recovered/Resolved]
  - Cogwheel rigidity [Unknown]
  - Affect lability [Unknown]
  - White matter lesion [Unknown]
  - Overdose [Unknown]
  - Perseveration [Unknown]
  - Urinary incontinence [Unknown]
  - Mutism [Unknown]
